FAERS Safety Report 5674765-5 (Version None)
Quarter: 2008Q1

REPORT INFORMATION
  Report Type: 
  Country: None (occurrence: None)
  Receive Date: 20080320
  Receipt Date: 20080318
  Transmission Date: 20080703
  Serious: Yes (Hospitalization)
  Sender: FDA-Public Use
  Company Number: FR-MERCK-0801FRA00033

PATIENT
  Age: 78 Year
  Sex: Female

DRUGS (8)
  1. FOSAMAX [Suspect]
     Indication: OSTEOPOROSIS
     Route: 048
     Dates: start: 20071003, end: 20071204
  2. HYDROXYCHLOROQUINE SULFATE [Suspect]
     Indication: RHEUMATOID ARTHRITIS
     Route: 048
     Dates: start: 20070401, end: 20071204
  3. RABEPRAZOLE SODIUM [Suspect]
     Route: 048
     Dates: start: 20071003, end: 20071204
  4. HYDROXYZINE HYDROCHLORIDE [Concomitant]
     Route: 048
  5. LERCANIDIPINE [Concomitant]
     Indication: HYPERTENSION
     Route: 048
     Dates: start: 20061001
  6. PROMESTRIENE [Concomitant]
     Route: 067
  7. BORIC ACID AND SODIUM BORATE AND SODIUM CHLORIDE [Concomitant]
     Route: 065
  8. CALCIUM CARBONATE AND CHOLECALCIFEROL [Concomitant]
     Indication: OSTEOPOROSIS
     Route: 048

REACTIONS (2)
  - NEPHRITIS INTERSTITIAL [None]
  - RENAL FAILURE ACUTE [None]
